FAERS Safety Report 21003996 (Version 1)
Quarter: 2022Q2

REPORT INFORMATION
  Report Type: Spontaneous
  Country: CN (occurrence: CN)
  Receive Date: 20220624
  Receipt Date: 20220624
  Transmission Date: 20220721
  Serious: Yes (Other)
  Sender: FDA-Public Use
  Company Number: CN-009507513-2206CHN005755

PATIENT
  Age: 73 Year
  Sex: Male
  Weight: 50 kg

DRUGS (2)
  1. CILASTATIN SODIUM\IMIPENEM [Suspect]
     Active Substance: CILASTATIN SODIUM\IMIPENEM
     Indication: Pneumonia
     Dosage: 1 G, Q8H, IV DRIP
     Route: 041
     Dates: start: 20220607, end: 20220608
  2. DOXYCYCLINE HYCLATE [Concomitant]
     Active Substance: DOXYCYCLINE HYCLATE
     Indication: Pneumonia
     Dosage: 0.1 G, Q12H, IV DRIP
     Route: 041
     Dates: start: 20220605, end: 20220609

REACTIONS (1)
  - Epilepsy [Recovering/Resolving]

NARRATIVE: CASE EVENT DATE: 20220608
